FAERS Safety Report 25432922 (Version 1)
Quarter: 2025Q2

REPORT INFORMATION
  Report Type: Spontaneous
  Country: US (occurrence: None)
  Receive Date: 20250613
  Receipt Date: 20250613
  Transmission Date: 20250716
  Serious: Yes (Other)
  Sender: MDD OPERATIONS
  Company Number: US-MDD US Operations-MDD202406-002132

PATIENT
  Age: 71 Year
  Sex: Female

DRUGS (3)
  1. APOKYN [Suspect]
     Active Substance: APOMORPHINE HYDROCHLORIDE
     Indication: Parkinson^s disease
     Route: 058
     Dates: start: 20240613
  2. APOKYN [Suspect]
     Active Substance: APOMORPHINE HYDROCHLORIDE
     Route: 058
     Dates: start: 20240613
  3. TRAZODONE [Concomitant]
     Active Substance: TRAZODONE HYDROCHLORIDE
     Indication: Sleep disorder
     Dosage: NOT PROVIDED

REACTIONS (19)
  - Head injury [Unknown]
  - Tremor [Unknown]
  - Memory impairment [Unknown]
  - Illness [Unknown]
  - Limb injury [Unknown]
  - Infusion site bruising [Not Recovered/Not Resolved]
  - Anxiety [Unknown]
  - Injection site pain [Unknown]
  - Dizziness [Unknown]
  - Nausea [Recovered/Resolved]
  - Somnolence [Recovered/Resolved]
  - Yawning [Recovered/Resolved]
  - Dyskinesia [Recovered/Resolved]
  - Rhinorrhoea [Recovered/Resolved]
  - Infusion site bruising [Recovered/Resolved]
  - Fall [Recovered/Resolved]
  - Skin laceration [Recovered/Resolved]
  - Device difficult to use [Unknown]
  - Drug effect less than expected [Unknown]

NARRATIVE: CASE EVENT DATE: 20240601
